FAERS Safety Report 9879964 (Version 1)
Quarter: 2014Q1

REPORT INFORMATION
  Report Type: Spontaneous
  Country: CH (occurrence: CH)
  Receive Date: 20140207
  Receipt Date: 20140207
  Transmission Date: 20141002
  Serious: Yes (Life-Threatening, Hospitalization, Other)
  Sender: FDA-Public Use
  Company Number: CH-ROCHE-1342086

PATIENT
  Age: 62 Year
  Sex: Male
  Weight: 64 kg

DRUGS (6)
  1. XELODA [Suspect]
     Indication: COLON CANCER
     Route: 048
     Dates: start: 20130404, end: 201309
  2. AVASTIN [Suspect]
     Indication: COLON CANCER
     Route: 041
     Dates: start: 20130404, end: 201309
  3. ELOXATIN [Suspect]
     Indication: COLON CANCER
     Route: 041
     Dates: start: 20130404, end: 201308
  4. ENALAPRIL MALEATE [Concomitant]
     Route: 065
     Dates: start: 20130404
  5. TENORMIN [Concomitant]
     Route: 048
     Dates: start: 20130404
  6. PANTOPRAZOL [Concomitant]
     Route: 048
     Dates: start: 20130404

REACTIONS (4)
  - Myocardial infarction [Recovered/Resolved]
  - Systemic inflammatory response syndrome [Not Recovered/Not Resolved]
  - Polyneuropathy [Unknown]
  - Bacterial infection [Not Recovered/Not Resolved]
